FAERS Safety Report 22535436 (Version 2)
Quarter: 2023Q2

REPORT INFORMATION
  Report Type: Spontaneous
  Country: ES (occurrence: ES)
  Receive Date: 20230608
  Receipt Date: 20230613
  Transmission Date: 20230722
  Serious: Yes (Death, Other)
  Sender: FDA-Public Use
  Company Number: ES-TEVA-2023-ES-2892831

PATIENT
  Age: 71 Year
  Sex: Female

DRUGS (16)
  1. VINCRISTINE SULFATE [Suspect]
     Active Substance: VINCRISTINE SULFATE
     Indication: Diffuse large B-cell lymphoma stage IV
     Dosage: 1ST LINE, 6 CYCLES AS A PART OF RCHOP REGIMEN
     Route: 065
  2. METHOTREXATE SODIUM [Suspect]
     Active Substance: METHOTREXATE SODIUM
     Indication: Diffuse large B-cell lymphoma stage IV
     Dosage: 5TH LINE AS A PART OF R-MTX-ARA-C REGIMEN
     Route: 065
  3. RITUXIMAB [Suspect]
     Active Substance: RITUXIMAB
     Indication: Diffuse large B-cell lymphoma stage IV
     Dosage: 1ST LINE, 6 CYCLES AS A PART OF RCHOP REGIMEN
     Route: 065
  4. RITUXIMAB [Suspect]
     Active Substance: RITUXIMAB
     Dosage: 3RD LINE, 1 CYCLE, BRIDGE THERAPY
     Route: 065
  5. RITUXIMAB [Suspect]
     Active Substance: RITUXIMAB
     Dosage: 5TH LINE AS A PART OF R-MTX-ARA-C REGIMEN
     Route: 065
  6. CYTARABINE [Suspect]
     Active Substance: CYTARABINE
     Indication: Diffuse large B-cell lymphoma stage IV
     Dosage: 5TH LINE AS A PART OF R-MTX-ARA-C REGIMEN
     Route: 065
  7. EPIRUBICIN HYDROCHLORIDE [Suspect]
     Active Substance: EPIRUBICIN HYDROCHLORIDE
     Indication: Diffuse large B-cell lymphoma stage IV
     Dosage: 2ND LINE, 8 CYCLES AS A PART OF EC REGIMEN
     Route: 065
  8. DOXORUBICIN HYDROCHLORIDE [Suspect]
     Active Substance: DOXORUBICIN HYDROCHLORIDE
     Indication: Diffuse large B-cell lymphoma stage IV
     Dosage: 1ST LINE, 6 CYCLES AS A PART OF RCHOP REGIMEN
     Route: 065
  9. PREDNISONE [Suspect]
     Active Substance: PREDNISONE
     Indication: Diffuse large B-cell lymphoma stage IV
     Dosage: 1ST LINE, 6 CYCLES AS A PART OF RCHOP REGIMEN
     Route: 065
  10. MOSUNETUZUMAB [Suspect]
     Active Substance: MOSUNETUZUMAB
     Indication: Diffuse large B-cell lymphoma stage IV
     Dosage: 2ND LINE, 8 CYCLES
     Route: 065
  11. BENDAMUSTINE HYDROCHLORIDE [Suspect]
     Active Substance: BENDAMUSTINE HYDROCHLORIDE
     Indication: Diffuse large B-cell lymphoma stage IV
     Dosage: 3RD LINE, 1 CYCLE, BRIDGE THERAPY
     Route: 042
  12. DEXAMETHASONE [Suspect]
     Active Substance: DEXAMETHASONE
     Indication: Diffuse large B-cell lymphoma stage IV
     Route: 065
  13. TEMOZOLOMIDE [Suspect]
     Active Substance: TEMOZOLOMIDE
     Indication: Diffuse large B-cell lymphoma stage IV
     Dosage: 6TH LINE, 4 CYCLES
     Route: 065
  14. IBRUTINIB [Suspect]
     Active Substance: IBRUTINIB
     Indication: Diffuse large B-cell lymphoma stage IV
     Dosage: 6TH LINE, 4 CYCLES
     Route: 065
  15. CYCLOPHOSPHAMIDE [Suspect]
     Active Substance: CYCLOPHOSPHAMIDE
     Indication: Diffuse large B-cell lymphoma stage IV
     Dosage: 1ST LINE, 6 CYCLES AS A PART OF RCHOP REGIMEN
     Route: 065
  16. CYCLOPHOSPHAMIDE [Suspect]
     Active Substance: CYCLOPHOSPHAMIDE
     Dosage: 2ND LINE, 8 CYCLES AS A PART OF EC REGIMEN
     Route: 065

REACTIONS (5)
  - Death [Fatal]
  - Vasogenic cerebral oedema [Not Recovered/Not Resolved]
  - Neurological symptom [Unknown]
  - Neoplasm progression [Not Recovered/Not Resolved]
  - Disorientation [Unknown]
